FAERS Safety Report 23058380 (Version 1)
Quarter: 2023Q4

REPORT INFORMATION
  Report Type: Spontaneous
  Country: IN (occurrence: IN)
  Receive Date: 20231012
  Receipt Date: 20231012
  Transmission Date: 20240110
  Serious: Yes (Other)
  Sender: FDA-Public Use
  Company Number: IN-MACLEODS PHARMACEUTICALS US LTD-MAC2023043766

PATIENT

DRUGS (11)
  1. TRAMADOL HYDROCHLORIDE [Suspect]
     Active Substance: TRAMADOL HYDROCHLORIDE
     Indication: Euphoric mood
     Dosage: 100 MILLIGRAM, QD
     Route: 065
  2. TRAMADOL HYDROCHLORIDE [Suspect]
     Active Substance: TRAMADOL HYDROCHLORIDE
     Dosage: 4 DOSAGE FORM, QD (AMOUNT OF TRAMADOL INCREASED TO 2?4 TABLETS/DAY DURING 2?3 MONTHS DURATION)
     Route: 065
  3. TRAMADOL HYDROCHLORIDE [Suspect]
     Active Substance: TRAMADOL HYDROCHLORIDE
     Dosage: 10 DOSAGE FORM, QD (8?10 TABLETS DAILY)
     Route: 065
  4. TRAMADOL HYDROCHLORIDE [Suspect]
     Active Substance: TRAMADOL HYDROCHLORIDE
     Dosage: 2 DOSAGE FORM, QD (AMOUNT OF TRAMADOL INCREASED TO 2?4 TABLETS/DAY DURING 2?3 MONTHS DURATION)
     Route: 065
  5. TRAMADOL HYDROCHLORIDE [Suspect]
     Active Substance: TRAMADOL HYDROCHLORIDE
     Dosage: 8 DOSAGE FORM, QD (8?10 TABLETS DAILY)
     Route: 065
  6. TRAMADOL HYDROCHLORIDE [Suspect]
     Active Substance: TRAMADOL HYDROCHLORIDE
     Dosage: UNK (8?10 TABLETS DAILY, DOSE REDUCED)
     Route: 065
  7. PREGABALIN [Suspect]
     Active Substance: PREGABALIN
     Indication: Euphoric mood
     Dosage: 4 DOSAGE FORM, QD (CAPSULE, 2-4/DAY)
     Route: 065
  8. PREGABALIN [Suspect]
     Active Substance: PREGABALIN
     Dosage: 20 DOSAGE FORM, QD (CAPSULE, LAST 2?3 YEARS, GRADUALLY INCREASED THE AMOUNT OF PREGABALIN TO 20 CAPS
     Route: 065
  9. PREGABALIN [Suspect]
     Active Substance: PREGABALIN
     Dosage: UNK, QD (GRADUALLY INCREASED)
     Route: 065
  10. PREGABALIN [Suspect]
     Active Substance: PREGABALIN
     Dosage: 2 DOSAGE FORM, QD (CAPSULE, 2-4/DAY)
     Route: 065
  11. PREGABALIN [Suspect]
     Active Substance: PREGABALIN
     Dosage: 150 MILLIGRAM, QD (TAPERING ITS DOSE TO 150 MG/DAY)
     Route: 065

REACTIONS (12)
  - Generalised tonic-clonic seizure [Recovered/Resolved]
  - Drug withdrawal syndrome [Recovering/Resolving]
  - Drug abuse [Recovered/Resolved]
  - Lethargy [Unknown]
  - Depressed mood [Unknown]
  - Somnolence [Unknown]
  - Fatigue [Unknown]
  - Pain [Unknown]
  - Yawning [Unknown]
  - Decreased appetite [Unknown]
  - Anxiety [Unknown]
  - Restlessness [Unknown]
